FAERS Safety Report 17168785 (Version 1)
Quarter: 2019Q4

REPORT INFORMATION
  Report Type: Spontaneous
  Country: US (occurrence: US)
  Receive Date: 20191217
  Receipt Date: 20191217
  Transmission Date: 20200122
  Serious: Yes (Hospitalization)
  Sender: FDA-Public Use
  Company Number: None

PATIENT
  Age: 62 Year
  Sex: Female

DRUGS (14)
  1. XELJANZ [Suspect]
     Active Substance: TOFACITINIB CITRATE
     Indication: RHEUMATOID ARTHRITIS
     Dosage: ?          OTHER FREQUENCY:TWO TIMES DAILY;?
     Route: 048
  2. ACID CONTROL [Concomitant]
     Active Substance: FAMOTIDINE
     Dates: start: 20170227
  3. ATENOLOL. [Concomitant]
     Active Substance: ATENOLOL
     Dates: start: 20170227
  4. LUNESTA [Concomitant]
     Active Substance: ESZOPICLONE
     Dates: start: 20170227
  5. WELLBUTRIN [Concomitant]
     Active Substance: BUPROPION HYDROCHLORIDE
     Dates: start: 20170227
  6. DICLOFENAC [Concomitant]
     Active Substance: DICLOFENAC
     Dates: start: 20170227
  7. DICYCLOMINE [Concomitant]
     Active Substance: DICYCLOMINE HYDROCHLORIDE
     Dates: start: 20170227
  8. DIAZEPAM. [Concomitant]
     Active Substance: DIAZEPAM
     Dates: start: 20170227
  9. LEXAPRO [Concomitant]
     Active Substance: ESCITALOPRAM OXALATE
     Dates: start: 20170227
  10. FISH OIL [Concomitant]
     Active Substance: FISH OIL
     Dates: start: 20170227
  11. CYCLOBENZAPR [Concomitant]
     Active Substance: CYCLOBENZAPRINE
     Dates: start: 20170227
  12. ESTRACE [Concomitant]
     Active Substance: ESTRADIOL
     Dates: start: 20170227
  13. LISNOP/HCTZ [Concomitant]
     Dates: start: 20170227
  14. VITAMIN D3 [Concomitant]
     Active Substance: CHOLECALCIFEROL
     Dates: start: 20170227

REACTIONS (3)
  - Pain [None]
  - Spinal laminectomy [None]
  - Arthritis [None]
